FAERS Safety Report 4898032-2 (Version None)
Quarter: 2006Q1

REPORT INFORMATION
  Report Type: 
  Country: None (occurrence: None)
  Receive Date: 20060201
  Receipt Date: 20050910
  Transmission Date: 20060701
  Serious: Yes (Hospitalization)
  Sender: FDA-Public Use
  Company Number: ES-ROCHE-417276

PATIENT
  Age: 65 Year
  Sex: Male

DRUGS (31)
  1. DACLIZUMAB [Suspect]
     Route: 042
     Dates: start: 20050704, end: 20050704
  2. DACLIZUMAB [Suspect]
     Route: 042
     Dates: start: 20050711, end: 20050711
  3. MYCOPHENOLATE MOFETIL [Suspect]
     Route: 042
     Dates: start: 20050704, end: 20050704
  4. MYCOPHENOLATE MOFETIL [Suspect]
     Dosage: REASON FOR CHANGE: DYSPEPSIA.
     Route: 048
     Dates: start: 20050712
  5. TACROLIMUS [Suspect]
     Route: 048
     Dates: start: 20050705
  6. METHYLPREDNISOLONE [Suspect]
     Route: 065
     Dates: start: 20050704, end: 20050712
  7. PREDNISONE [Suspect]
     Route: 065
     Dates: start: 20050713
  8. PANTOPRAZOL [Concomitant]
     Indication: PROPHYLAXIS AGAINST GASTROINTESTINAL ULCER
     Dates: start: 20050704
  9. INSULIN [Concomitant]
     Dates: start: 20050704, end: 20050730
  10. CIPROFLOXACIN [Concomitant]
     Indication: INFECTION PROPHYLAXIS
     Dates: start: 20050704, end: 20050806
  11. TEICOPLANIN [Concomitant]
     Indication: INFECTION PROPHYLAXIS
     Dates: start: 20050704, end: 20050711
  12. SEPTRIN [Concomitant]
     Indication: INFECTION PROPHYLAXIS
     Dates: start: 20050704, end: 20050908
  13. NISTATIN [Concomitant]
     Indication: ANTIFUNGAL PROPHYLAXIS
     Dates: start: 20050704, end: 20050708
  14. FENTANILO [Concomitant]
     Dates: start: 20050704, end: 20050707
  15. FUROSEMIDA [Concomitant]
     Dosage: STOPPED ON 5 JUL 2005 AND RESTARTED ON 7 JUL 05.
     Dates: start: 20050705, end: 20050718
  16. ITRACONAZOLE [Concomitant]
     Indication: ANTIFUNGAL PROPHYLAXIS
     Dates: start: 20050706, end: 20051016
  17. CALCIUM CHLORIDE [Concomitant]
     Dates: start: 20050707, end: 20050708
  18. DOLANTINA [Concomitant]
     Dates: start: 20050707, end: 20050719
  19. ORFIDAL [Concomitant]
     Indication: ANXIETY
     Dates: start: 20050707, end: 20051202
  20. LEXATIN [Concomitant]
     Indication: ANXIETY
     Dosage: STOPPED ON 9 JUL 05 AND RESTARTED ON 15 JUL 05
     Dates: start: 20050707, end: 20050731
  21. LARGACTIL [Concomitant]
     Dosage: INDICATION REPORTED AS HYPUS.
     Dates: start: 20050707, end: 20050708
  22. PRIMPERAN INJ [Concomitant]
     Indication: NAUSEA
     Dates: start: 20050708, end: 20050713
  23. DOPAMINE [Concomitant]
     Indication: OLIGURIA
     Dates: start: 20050708, end: 20050709
  24. ASTUDAL [Concomitant]
     Indication: HYPERTENSION
     Dates: start: 20050708, end: 20050718
  25. BOI-K [Concomitant]
     Dates: start: 20050710, end: 20050712
  26. CLEXANE [Concomitant]
     Indication: ARTERIAL STENOSIS
     Dates: start: 20050715, end: 20051227
  27. ACYCLOVIR [Concomitant]
     Dates: start: 20050713, end: 20050720
  28. ACETAMINOPHEN [Concomitant]
     Dates: start: 20050714, end: 20050716
  29. VANCOMYCIN [Concomitant]
     Dates: start: 20050714, end: 20050729
  30. LIDOCAINE [Concomitant]
     Indication: HERPETIC STOMATITIS
     Route: 061
     Dates: start: 20050714, end: 20050731
  31. CEFTRIAXONE [Concomitant]
     Dates: start: 20050720, end: 20050721

REACTIONS (5)
  - BILE DUCT NECROSIS [None]
  - BILIARY ANASTOMOSIS COMPLICATION [None]
  - IMPAIRED HEALING [None]
  - POSTOPERATIVE INFECTION [None]
  - WOUND INFECTION [None]
